FAERS Safety Report 6377599-1 (Version None)
Quarter: 2009Q3

REPORT INFORMATION
  Report Type: 
  Country: None (occurrence: None)
  Receive Date: 20090923
  Receipt Date: 20090923
  Transmission Date: 20100115
  Serious: Yes (Life-Threatening, Hospitalization)
  Sender: FDA-Public Use
  Company Number: None

PATIENT
  Age: 87 Year
  Sex: Female
  Weight: 66.7 kg

DRUGS (6)
  1. RITUXIMAB [Suspect]
     Indication: CHRONIC LYMPHOCYTIC LEUKAEMIA
     Dosage: 375MG/M2 IV X 1, 5TH CYCLE 8 4 WKS/CYCLE
     Route: 042
     Dates: start: 20081110
  2. RIVASTIGMINE TARTRATE [Suspect]
     Indication: CHRONIC LYMPHOCYTIC LEUKAEMIA
     Dosage: 9.5 MG PATCH QD
  3. RISEDRONATE SODIUM [Concomitant]
  4. ACYCLOVIR [Concomitant]
  5. GABAPENTIN [Concomitant]
  6. CALCIUM [Concomitant]

REACTIONS (3)
  - BLOOD PRESSURE DECREASED [None]
  - LETHARGY [None]
  - OXYGEN SATURATION DECREASED [None]
